FAERS Safety Report 9461661 (Version 3)
Quarter: 2013Q3

REPORT INFORMATION
  Report Type: Spontaneous
  Country: DE (occurrence: DE)
  Receive Date: 20130816
  Receipt Date: 20130916
  Transmission Date: 20140515
  Serious: Yes (Hospitalization, Other)
  Sender: FDA-Public Use
  Company Number: DE-AMGEN-DEUCT2013054277

PATIENT
  Sex: Female

DRUGS (16)
  1. PEGFILGRASTIM [Suspect]
     Indication: B-CELL LYMPHOMA
     Dosage: 6 MG, QOD
     Route: 058
     Dates: start: 20130412, end: 20130630
  2. RITUXIMAB [Suspect]
     Indication: B-CELL LYMPHOMA
     Dosage: 750 MG, Q2WK
     Route: 042
     Dates: start: 20130319
  3. CYCLOPHOSPHAMIDE [Suspect]
     Indication: B-CELL LYMPHOMA
     Dosage: 1500 MG, Q2WK
     Route: 042
     Dates: start: 20130410, end: 20130628
  4. DOXORUBICINE [Suspect]
     Indication: B-CELL LYMPHOMA
     Dosage: 100 MG, Q2WK
     Route: 042
     Dates: start: 20130410, end: 20130628
  5. VINCRISTINE [Suspect]
     Indication: B-CELL LYMPHOMA
     Dosage: 2 MG, QOD
     Route: 042
     Dates: start: 20130410, end: 20130612
  6. PREDNISONE [Suspect]
     Indication: B-CELL LYMPHOMA
     Dosage: 600 MG, QD (6D/CYCLE)
     Route: 048
     Dates: start: 20130409, end: 20130702
  7. METHOTREXATE DISODIUM [Concomitant]
     Indication: B-CELL LYMPHOMA
     Dosage: 300 MG, QD
     Route: 042
     Dates: start: 20130321, end: 20130321
  8. LEUCOVORIN [Concomitant]
     Indication: B-CELL LYMPHOMA
     Dosage: 1950 MG, UNK
     Route: 042
     Dates: start: 20130322
  9. GRANISETRON [Concomitant]
     Indication: ANTIEMETIC SUPPORTIVE CARE
     Dosage: 1 MG, Q2WK
     Route: 042
     Dates: start: 20130410, end: 20130628
  10. POTASSIUM SODIUM HYDROGEN CITRATE [Concomitant]
     Indication: BLOOD URIC ACID
     Dosage: UNK 3 SPOONS, Q2WK
     Route: 048
     Dates: start: 20130410, end: 20130628
  11. MESNA [Concomitant]
     Indication: PROPHYLAXIS
     Dosage: 900 MG, Q2WK
     Route: 048
     Dates: start: 20130410, end: 20130628
  12. TRIMETOPRIM SULFAMETOXAZOL [Concomitant]
     Indication: PROPHYLAXIS
     Dosage: 1920 MG, Q2WK
     Route: 048
     Dates: start: 20130413
  13. ACICLOVIR [Concomitant]
     Indication: PROPHYLAXIS
     Dosage: 1200 MG, QD
     Route: 048
     Dates: start: 20130410
  14. LEVOFLOXACIN [Concomitant]
     Indication: PROPHYLAXIS
     Dosage: 500 MG,  7 DAYS EACH CYCLE
     Route: 048
     Dates: start: 20130414
  15. RAMIPRIL [Concomitant]
     Indication: HYPERTENSION
     Dosage: 5 MG, 1 TIME A DAY
     Route: 048
  16. MACROGOL W/POTASSIUM CHLORIDE/SODIUM BICARBON [Concomitant]
     Indication: CONSTIPATION
     Dosage: 1 DF, QD
     Route: 048

REACTIONS (6)
  - Pulmonary embolism [Recovered/Resolved with Sequelae]
  - Mitral valve incompetence [Unknown]
  - Tricuspid valve incompetence [Unknown]
  - Pulmonary arterial pressure increased [Unknown]
  - Left ventricular failure [Unknown]
  - Right ventricular failure [Unknown]
